FAERS Safety Report 5051573-X (Version None)
Quarter: 2006Q3

REPORT INFORMATION
  Report Type: 
  Country: None (occurrence: None)
  Receive Date: 20060711
  Receipt Date: 20060705
  Transmission Date: 20061208
  Serious: Yes (Other)
  Sender: FDA-Public Use
  Company Number: S06-USA-02524-01

PATIENT
  Age: 26 Year
  Sex: Female

DRUGS (1)
  1. LEXAPRO [Suspect]
     Indication: DEPRESSION
     Dosage: 10 MG QD PO
     Route: 048
     Dates: start: 20060601, end: 20060601

REACTIONS (6)
  - CONVULSION [None]
  - DIZZINESS [None]
  - INSOMNIA [None]
  - NAUSEA [None]
  - TREMOR [None]
  - VOMITING [None]
